FAERS Safety Report 6025466-5 (Version None)
Quarter: 2008Q4

REPORT INFORMATION
  Report Type: 
  Country: None (occurrence: None)
  Receive Date: 20081231
  Receipt Date: 20081219
  Transmission Date: 20090506
  Serious: Yes (Other)
  Sender: FDA-Public Use
  Company Number: FR-PFIZER INC-2008159494

PATIENT

DRUGS (1)
  1. DOSTINEX [Suspect]
     Dosage: UNK

REACTIONS (2)
  - AGGRESSION [None]
  - HALLUCINATION, VISUAL [None]
